FAERS Safety Report 13093956 (Version 1)
Quarter: 2017Q1

REPORT INFORMATION
  Report Type: Spontaneous
  Country: US (occurrence: US)
  Receive Date: 20170106
  Receipt Date: 20170106
  Transmission Date: 20170428
  Serious: No
  Sender: FDA-Public Use
  Company Number: US-SHIRE-US201620470

PATIENT
  Age: 10 Decade
  Sex: Female

DRUGS (1)
  1. XIIDRA [Suspect]
     Active Substance: LIFITEGRAST
     Indication: DRY EYE
     Dosage: 1 GTT (OU), 2X/DAY:BID
     Route: 047
     Dates: start: 2016

REACTIONS (3)
  - Drug ineffective [Not Recovered/Not Resolved]
  - Dysgeusia [Unknown]
  - Instillation site pain [Unknown]

NARRATIVE: CASE EVENT DATE: 2016
